FAERS Safety Report 17874089 (Version 1)
Quarter: 2020Q2

REPORT INFORMATION
  Report Type: Spontaneous
  Country: CN (occurrence: CN)
  Receive Date: 20200609
  Receipt Date: 20200609
  Transmission Date: 20200714
  Serious: Yes (Other)
  Sender: FDA-Public Use
  Company Number: CN-B.I. PHARMACEUTICALS,INC./RIDGEFIELD-2020-BI-028298

PATIENT
  Age: 55 Year
  Sex: Female
  Weight: 65 kg

DRUGS (3)
  1. ATROVENT [Suspect]
     Active Substance: IPRATROPIUM BROMIDE
     Indication: PERICARDIAL EFFUSION
     Route: 055
     Dates: start: 20200502, end: 20200503
  2. BRICANYL [Suspect]
     Active Substance: TERBUTALINE SULFATE
     Indication: PERICARDIAL EFFUSION
     Dosage: DOSAGE FORM: ATOMIZING SOLUTION
     Route: 055
     Dates: start: 20200502, end: 20200503
  3. PULMICORT TURBUHALER [Suspect]
     Active Substance: BUDESONIDE
     Indication: PERICARDIAL EFFUSION
     Dosage: DOSAGE FORM: SUSPENSION SOLUTION
     Route: 055
     Dates: start: 20200502, end: 20200503

REACTIONS (2)
  - Pruritus [Not Recovered/Not Resolved]
  - Erythema [Not Recovered/Not Resolved]

NARRATIVE: CASE EVENT DATE: 20200503
